FAERS Safety Report 9556740 (Version 3)
Quarter: 2014Q2

REPORT INFORMATION
  Report Type: Spontaneous
  Country: US (occurrence: None)
  Receive Date: 20130906
  Receipt Date: 20140416
  Transmission Date: 20141212
  Serious: Yes (Hospitalization, Disabling, Other)
  Sender: FDA-Public Use
  Company Number: 163-POMAL-13052954

PATIENT
  Age: 70 Year
  Sex: Male
  Weight: 58.79 kg

DRUGS (22)
  1. POMALYST [Suspect]
     Indication: PLASMA CELL MYELOMA
     Dosage: 2 MG, 1 IN 1 D, PO
     Route: 048
     Dates: start: 201304
  2. ALBUTEROL SULFATE (SALBUTAMOL SULFATE) (90 MICROGRAM, AEROSOL FOR INHALATION) [Concomitant]
  3. ACYCLOVIR (ACICLOVIR) (CAPSULES) [Concomitant]
  4. ASA (ACETYLSALICYLIC ACID) (ENTERIC-COATED TABLET) [Concomitant]
  5. AUGMENTIN [Concomitant]
  6. FOLIC ACID (FOLIC ACID) [Concomitant]
  7. LEVAQUIN (LEVOFLOXACIN) [Concomitant]
  8. MAGNESIUM OXIDE (MAGNESIUM OXIDE) [Concomitant]
  9. PHOS-NAK (PHOS-NAK) (POWDER) [Concomitant]
  10. POTASSIUM CHLORIDE (POTASSIUM CHLORIDE) (SUSTAINED-RELEASE CAPSULE) [Concomitant]
  11. PRILOSEC [Concomitant]
  12. SODIUM BICARBONATE (SODIUM BICARBONATE) [Concomitant]
  13. DARBEPOETIN ALFA (DARBEPOETIN ALFA) [Concomitant]
  14. VITAMIN B12 (CYANOCOBALAMIN) [Concomitant]
  15. ACIDOPHILUS LACTOBACILLUS [Concomitant]
  16. DEXAMETHASONE [Concomitant]
  17. BLOOD (BLOOD AND RELATED PRODUCTS) [Concomitant]
  18. MAGOX 400 [Concomitant]
  19. FOSAMAX (ALENDRONATE SODIUM) [Concomitant]
  20. CEPPROZIL [Concomitant]
  21. CARFILOMIB [Concomitant]
  22. NYSTATIN [Concomitant]

REACTIONS (6)
  - Haemoglobin decreased [None]
  - Pyrexia [None]
  - Platelet count decreased [None]
  - Plasma cell myeloma [None]
  - Malaise [None]
  - Drug ineffective [None]
